FAERS Safety Report 8398730 (Version 2)
Quarter: 2012Q4

REPORT INFORMATION
  Report Type: 
  Country: US (occurrence: US)
  Receive Date: 20120209
  Receipt Date: 20120913
  Transmission Date: 20130627
  Serious: Yes (Hospitalization, Other)
  Sender: FDA-Public Use
  Company Number: US-ASTRAZENECA-2012SE03856

PATIENT
  Age: 24 Year
  Sex: Female

DRUGS (1)
  1. NEXIUM [Suspect]
     Route: 048

REACTIONS (7)
  - Exposure during pregnancy [Unknown]
  - Gastrooesophageal reflux disease [Unknown]
  - Gastric disorder [Unknown]
  - Pain [Unknown]
  - Sleep disorder due to general medical condition, insomnia type [Unknown]
  - Vomiting [Unknown]
  - Drug dose omission [Unknown]
